FAERS Safety Report 17841244 (Version 1)
Quarter: 2020Q2

REPORT INFORMATION
  Report Type: Spontaneous
  Country: GB (occurrence: GB)
  Receive Date: 20200529
  Receipt Date: 20200529
  Transmission Date: 20200714
  Serious: Yes (Death, Hospitalization)
  Sender: FDA-Public Use
  Company Number: NVSC2020GB137093

PATIENT
  Age: 76 Year
  Sex: Female

DRUGS (26)
  1. CAPECITABINE. [Suspect]
     Active Substance: CAPECITABINE
     Dosage: (DOSE MODIFIED)
     Route: 048
     Dates: start: 20191011, end: 20191127
  2. HYDROCORTISONE. [Concomitant]
     Active Substance: HYDROCORTISONE
     Indication: PRODUCT USED FOR UNKNOWN INDICATION
     Dosage: 0.5 %
     Route: 061
     Dates: start: 20191025, end: 2019
  3. SERTRALINE [Concomitant]
     Active Substance: SERTRALINE HYDROCHLORIDE
     Indication: PRODUCT USED FOR UNKNOWN INDICATION
     Dosage: 50 MG, QD
     Route: 048
  4. LANSOPRAZOLE. [Concomitant]
     Active Substance: LANSOPRAZOLE
     Indication: PRODUCT USED FOR UNKNOWN INDICATION
     Dosage: 30 MG, QD
     Route: 048
  5. LEVETIRACETAM. [Concomitant]
     Active Substance: LEVETIRACETAM
     Indication: SEIZURE
     Dosage: 250 MG (0.5/DAY)
     Route: 048
  6. CAPECITABINE. [Suspect]
     Active Substance: CAPECITABINE
     Indication: BREAST CANCER METASTATIC
     Dosage: 1800 MG, BIW
     Route: 048
     Dates: start: 20191011
  7. FOLIC ACID. [Concomitant]
     Active Substance: FOLIC ACID
     Indication: PRODUCT USED FOR UNKNOWN INDICATION
     Dosage: 5 MG, QD
     Route: 048
     Dates: start: 20160211
  8. DEXAMETHASONE. [Concomitant]
     Active Substance: DEXAMETHASONE
     Indication: METASTASES TO CENTRAL NERVOUS SYSTEM
     Dosage: 8 MG (0.5/DAY)
     Route: 048
     Dates: start: 201812
  9. COCODAMOL [Concomitant]
     Active Substance: ACETAMINOPHEN\CODEINE PHOSPHATE
     Indication: PRODUCT USED FOR UNKNOWN INDICATION
     Dosage: 30 MG
     Route: 048
  10. ROSUVASTATIN. [Concomitant]
     Active Substance: ROSUVASTATIN
     Indication: PRODUCT USED FOR UNKNOWN INDICATION
     Dosage: 5 MG, QD
     Route: 048
  11. METFORMIN [Concomitant]
     Active Substance: METFORMIN HYDROCHLORIDE
     Indication: PRODUCT USED FOR UNKNOWN INDICATION
     Dosage: 500 MG, QD
     Route: 048
     Dates: end: 2018
  12. LETROZOLE. [Suspect]
     Active Substance: LETROZOLE
     Indication: BREAST CANCER METASTATIC
     Dosage: 2.5 MG, QD
     Route: 048
     Dates: start: 20171128
  13. TRASTUZUMAB. [Suspect]
     Active Substance: TRASTUZUMAB
     Indication: BREAST CANCER METASTATIC
     Dosage: 882 MG, TIW (DOSE MODIFIED)
     Route: 041
     Dates: start: 20180116, end: 20180116
  14. PERTUZUMAB. [Suspect]
     Active Substance: PERTUZUMAB
     Dosage: (DRUG DISCONTINUED DUE TO DISEASE PROGRESSION FURTHER ANTICANCER TREATMENT)
     Route: 042
     Dates: start: 20190118, end: 20190711
  15. AMOXICILLIN. [Concomitant]
     Active Substance: AMOXICILLIN
     Indication: URINARY TRACT INFECTION
     Dosage: 500 MG (0.33/ DAY)
     Route: 042
     Dates: start: 20190330, end: 20190401
  16. DENOSUMAB [Concomitant]
     Active Substance: DENOSUMAB
     Indication: PRODUCT USED FOR UNKNOWN INDICATION
     Dosage: 120 MG
     Route: 058
     Dates: start: 20180503
  17. POTASSIUM CHLORIDE AND SODIUM CHLORIDE [Concomitant]
     Active Substance: POTASSIUM CHLORIDE\SODIUM CHLORIDE
     Indication: HYPOKALAEMIA
     Dosage: UNK UNK, QD
     Route: 042
     Dates: start: 20190329, end: 20190401
  18. CEPHALEXIN. [Concomitant]
     Active Substance: CEPHALEXIN
     Indication: URINARY TRACT INFECTION
     Dosage: UNK
     Route: 048
     Dates: start: 20190208, end: 2019
  19. TRASTUZUMAB. [Suspect]
     Active Substance: TRASTUZUMAB
     Dosage: 588 MG, TIW
     Route: 041
     Dates: start: 20190118
  20. PERTUZUMAB. [Suspect]
     Active Substance: PERTUZUMAB
     Dosage: (DRUG DISCONTINUED DUE TO DISEASE PROGRESSION FURTHER ANTICANCER TREATMENT)
     Route: 042
     Dates: start: 20180503, end: 20181115
  21. NIFEDIPINE. [Concomitant]
     Active Substance: NIFEDIPINE
     Indication: PRODUCT USED FOR UNKNOWN INDICATION
     Dosage: 60 MG, QD
     Route: 048
  22. CAPECITABINE. [Suspect]
     Active Substance: CAPECITABINE
     Dosage: 2000 MG (0.5/DAY)
     Route: 048
     Dates: start: 20191204
  23. PERTUZUMAB. [Suspect]
     Active Substance: PERTUZUMAB
     Indication: BREAST CANCER METASTATIC
     Dosage: (DOSE MODIFIED)
     Route: 042
     Dates: start: 20180116, end: 20180116
  24. NITROFURANTOIN. [Concomitant]
     Active Substance: NITROFURANTOIN
     Indication: URINARY TRACT INFECTION
     Dosage: 50 MG (0.25/DAY)
     Route: 048
     Dates: start: 20190403, end: 20190405
  25. METRONIDAZOLE. [Concomitant]
     Active Substance: METRONIDAZOLE
     Indication: DIARRHOEA
     Dosage: 400 MG (0.33/DAY)
     Route: 048
     Dates: start: 20190401, end: 20190403
  26. TRASTUZUMAB. [Suspect]
     Active Substance: TRASTUZUMAB
     Dosage: 588 MG, TIW (DRUG DISCONTINUED DUE TO DISEASE PROGRESSION FURTHER ANTICANCER TREATMENT)
     Route: 041
     Dates: start: 20180503, end: 20181115

REACTIONS (1)
  - Dyspnoea [Fatal]

NARRATIVE: CASE EVENT DATE: 20200224
